FAERS Safety Report 5843803-9 (Version None)
Quarter: 2008Q3

REPORT INFORMATION
  Report Type: 
  Country: None (occurrence: None)
  Receive Date: 20080813
  Receipt Date: 20080731
  Transmission Date: 20090109
  Serious: Yes (Other)
  Sender: FDA-Public Use
  Company Number: PHHY2008JP16786

PATIENT
  Sex: Female

DRUGS (1)
  1. ZOMETA [Suspect]
     Indication: BREAST CANCER
     Dosage: 4 MG, UNK
     Route: 042
     Dates: start: 20080101, end: 20080725

REACTIONS (4)
  - GINGIVAL SWELLING [None]
  - LOOSE TOOTH [None]
  - OSTEONECROSIS [None]
  - TOOTH LOSS [None]
